FAERS Safety Report 16802640 (Version 1)
Quarter: 2019Q3

REPORT INFORMATION
  Report Type: Spontaneous
  Country: US (occurrence: US)
  Receive Date: 20190912
  Receipt Date: 20190912
  Transmission Date: 20191005
  Serious: Yes (Hospitalization)
  Sender: FDA-Public Use
  Company Number: US-ROCHE-2403024

PATIENT
  Age: 79 Year
  Sex: Male

DRUGS (1)
  1. ATEZOLIZUMAB. [Suspect]
     Active Substance: ATEZOLIZUMAB
     Indication: BLADDER CANCER
     Route: 065

REACTIONS (3)
  - Myocarditis [Recovering/Resolving]
  - Acute myocardial infarction [Recovering/Resolving]
  - Conduction disorder [Recovering/Resolving]
